FAERS Safety Report 4965427-8 (Version None)
Quarter: 2006Q2

REPORT INFORMATION
  Report Type: 
  Country: None (occurrence: None)
  Receive Date: 20060406
  Receipt Date: 20050913
  Transmission Date: 20061013
  Serious: Yes (Death)
  Sender: FDA-Public Use
  Company Number: US-MERCK-0509USA01827

PATIENT
  Age: 63 Year
  Sex: Male
  Weight: 135 kg

DRUGS (4)
  1. VIOXX [Suspect]
     Indication: PAIN
     Route: 048
     Dates: start: 20021201, end: 20031109
  2. VIOXX [Suspect]
     Route: 048
     Dates: start: 20021201, end: 20031109
  3. VIOXX [Suspect]
     Indication: ARTHRITIS
     Route: 048
     Dates: start: 20021201, end: 20031109
  4. VIOXX [Suspect]
     Route: 048
     Dates: start: 20021201, end: 20031109

REACTIONS (3)
  - CYST [None]
  - HERNIA [None]
  - SUDDEN CARDIAC DEATH [None]
